FAERS Safety Report 8403194-6 (Version None)
Quarter: 2012Q2

REPORT INFORMATION
  Report Type: 
  Country: None (occurrence: None)
  Receive Date: 20120323
  Receipt Date: 20110407
  Transmission Date: 20120825
  Serious: Yes (Hospitalization)
  Sender: FDA-Public Use
  Company Number: 163-21880-11040993

PATIENT
  Age: 59 Year
  Sex: Female

DRUGS (4)
  1. PREDNISONE TAB [Concomitant]
  2. REVLIMID [Suspect]
     Indication: CHRONIC LYMPHOCYTIC LEUKAEMIA
     Dosage: 10 MG, DAILY X 21 DAYS EVERY 28 DAY; 10 MG, DAILY X 21 DAYS EVERY 28 CYCLE, PO;10 MG, DAILY X 21 DA
     Route: 048
     Dates: start: 20110326
  3. REVLIMID [Suspect]
     Indication: CHRONIC LYMPHOCYTIC LEUKAEMIA
     Dosage: 10 MG, DAILY X 21 DAYS EVERY 28 DAY; 10 MG, DAILY X 21 DAYS EVERY 28 CYCLE, PO;10 MG, DAILY X 21 DA
     Route: 048
     Dates: start: 20101111, end: 20110325
  4. ASPIRIN [Concomitant]

REACTIONS (1)
  - PNEUMONIA [None]
